FAERS Safety Report 4334232-8 (Version None)
Quarter: 2004Q2

REPORT INFORMATION
  Report Type: 
  Country: None (occurrence: None)
  Receive Date: 20040405
  Receipt Date: 20040322
  Transmission Date: 20050107
  Serious: Yes (Other)
  Sender: FDA-Public Use
  Company Number: S04-USA-00713-01

PATIENT
  Age: 72 Year
  Sex: Male
  Weight: 75.2971 kg

DRUGS (4)
  1. LEXAPRO [Suspect]
     Indication: PANIC DISORDER
     Dosage: 10 MG QD PO
     Route: 048
     Dates: start: 20030501, end: 20040210
  2. HYTRIN [Concomitant]
  3. LIPITOR [Concomitant]
  4. VIAGRA [Concomitant]

REACTIONS (12)
  - ASTHENIA [None]
  - BLOOD CHOLESTEROL INCREASED [None]
  - BLOOD GLUCOSE INCREASED [None]
  - BLOOD THYROID STIMULATING HORMONE DECREASED [None]
  - CREATININE URINE INCREASED [None]
  - ERECTILE DYSFUNCTION [None]
  - METANEPHRINE URINE INCREASED [None]
  - ONYCHOMYCOSIS [None]
  - PANIC ATTACK [None]
  - THYROID NEOPLASM [None]
  - URINARY RETENTION [None]
  - WEIGHT INCREASED [None]
